FAERS Safety Report 15717130 (Version 1)
Quarter: 2018Q4

REPORT INFORMATION
  Report Type: Spontaneous
  Country: US (occurrence: US)
  Receive Date: 20181213
  Receipt Date: 20181213
  Transmission Date: 20190205
  Serious: No
  Sender: FDA-Public Use
  Company Number: US-ACCORD-072893

PATIENT
  Age: 79 Year
  Sex: Female
  Weight: 81.65 kg

DRUGS (4)
  1. LOSARTAN. [Concomitant]
     Active Substance: LOSARTAN
  2. CITALOPRAM [Concomitant]
     Active Substance: CITALOPRAM HYDROBROMIDE
  3. SYNTHROID [Concomitant]
     Active Substance: LEVOTHYROXINE SODIUM
  4. PRAVASTATIN ACCORD [Suspect]
     Active Substance: PRAVASTATIN
     Indication: BLOOD CHOLESTEROL INCREASED
     Dates: start: 20180918, end: 20180919

REACTIONS (6)
  - Tongue erythema [Recovered/Resolved]
  - Swollen tongue [Recovered/Resolved]
  - Sensitivity of teeth [Recovered/Resolved]
  - Tongue disorder [Recovered/Resolved]
  - Product substitution issue [Unknown]
  - Oral herpes [Not Recovered/Not Resolved]

NARRATIVE: CASE EVENT DATE: 20180918
